FAERS Safety Report 8787245 (Version 5)
Quarter: 2016Q1

REPORT INFORMATION
  Report Type: Spontaneous
  Country: US (occurrence: US)
  Receive Date: 20120914
  Receipt Date: 20160204
  Transmission Date: 20160526
  Serious: Yes (Hospitalization, Disabling, Other)
  Sender: FDA-Public Use
  Company Number: US-AMGEN-USASP2012057747

PATIENT
  Age: 44 Year
  Sex: Female

DRUGS (2)
  1. ENBREL [Suspect]
     Active Substance: ETANERCEPT
     Indication: PSORIATIC ARTHROPATHY
     Dosage: 50 MG, QWK
     Route: 058
     Dates: start: 2003, end: 2015
  2. ENBREL [Suspect]
     Active Substance: ETANERCEPT
     Indication: PSORIASIS

REACTIONS (16)
  - Eye disorder [Not Recovered/Not Resolved]
  - Glaucoma [Recovered/Resolved]
  - Arthritis [Not Recovered/Not Resolved]
  - Carotid artery disease [Unknown]
  - Diabetes mellitus [Not Recovered/Not Resolved]
  - Urticaria [Unknown]
  - Inflammation [Not Recovered/Not Resolved]
  - Vasculitis [Unknown]
  - Skin ulcer [Unknown]
  - Takayasu^s arteritis [Unknown]
  - Psoriasis [Not Recovered/Not Resolved]
  - Hypoaesthesia [Unknown]
  - Visual acuity reduced [Not Recovered/Not Resolved]
  - Injection site pain [Recovered/Resolved]
  - Blindness [Unknown]
  - Memory impairment [Not Recovered/Not Resolved]

NARRATIVE: CASE EVENT DATE: 20080718
